FAERS Safety Report 9289209 (Version 1)
Quarter: 2013Q2

REPORT INFORMATION
  Report Type: Spontaneous
  Country: US (occurrence: US)
  Receive Date: 20130514
  Receipt Date: 20130514
  Transmission Date: 20140414
  Serious: No
  Sender: FDA-Public Use
  Company Number: US-OPTIMER PHARMACEUTICALS, INC.-20120034

PATIENT
  Age: 54 Year
  Sex: Female

DRUGS (2)
  1. DIFICID [Suspect]
     Indication: CLOSTRIDIAL INFECTION
     Dosage: 200 MG, BID
     Route: 048
     Dates: start: 20120107, end: 20120117
  2. DIFICID [Suspect]
     Dosage: 200 MG, BID
     Route: 048
     Dates: start: 20120127, end: 20120205

REACTIONS (4)
  - Diarrhoea [Recovering/Resolving]
  - Weight decreased [Unknown]
  - Therapeutic response delayed [Unknown]
  - Nausea [Recovering/Resolving]
